FAERS Safety Report 11652868 (Version 1)
Quarter: 2015Q4

REPORT INFORMATION
  Report Type: Spontaneous
  Country: US (occurrence: US)
  Receive Date: 20151022
  Receipt Date: 20151022
  Transmission Date: 20160304
  Serious: No
  Sender: FDA-Public Use
  Company Number: US-B.I. PHARMACEUTICALS,INC./RIDGEFIELD-2014-BI-61293BI

PATIENT
  Sex: Female

DRUGS (2)
  1. GILOTRIF [Suspect]
     Active Substance: AFATINIB
     Indication: NON-SMALL CELL LUNG CANCER
     Dosage: 40 MG
     Route: 048
     Dates: start: 20140731
  2. MORPHINE SULF [Concomitant]
     Active Substance: MORPHINE SULFATE
     Indication: PRODUCT USED FOR UNKNOWN INDICATION
     Dosage: CR- CONTROLLED RELEASE
     Route: 065

REACTIONS (7)
  - Diarrhoea [Unknown]
  - Skin ulcer [Unknown]
  - Stomatitis [Unknown]
  - Skin reaction [Unknown]
  - Oral disorder [Unknown]
  - Pain in extremity [Unknown]
  - Nail disorder [Unknown]
